FAERS Safety Report 12227561 (Version 2)
Quarter: 2016Q2

REPORT INFORMATION
  Report Type: Report from Study
  Country: US (occurrence: US)
  Receive Date: 20160331
  Receipt Date: 20160414
  Transmission Date: 20160815
  Serious: Yes (Hospitalization)
  Sender: FDA-Public Use
  Company Number: US-VERTEX PHARMACEUTICALS-2016-001983

PATIENT
  Age: 16 Year
  Sex: Male

DRUGS (16)
  1. ORKAMBI [Suspect]
     Active Substance: IVACAFTOR\LUMACAFTOR
     Indication: CYSTIC FIBROSIS
     Dosage: 200/125 MG
     Route: 048
     Dates: start: 20150728
  2. CLONIDINE. [Concomitant]
     Active Substance: CLONIDINE
     Dosage: 1 DF, BID
     Route: 048
     Dates: start: 20151231
  3. DORNASE ALFA [Concomitant]
     Active Substance: DORNASE ALFA
     Dosage: 2.5 MG, QD
     Dates: start: 20151229
  4. ALBUTEROL HFA [Concomitant]
     Active Substance: ALBUTEROL SULFATE
     Indication: WHEEZING
     Dosage: UNK
     Route: 055
     Dates: start: 20151229
  5. OMEPRAZOLE. [Concomitant]
     Active Substance: OMEPRAZOLE
     Dosage: GIVE ^ROXY^ 5 ML BY MOUTH
     Route: 048
     Dates: start: 20160223
  6. MONTELUKAST [Concomitant]
     Active Substance: MONTELUKAST SODIUM
     Dosage: MIX 1 PACKET WITH A SPOONFUL OF COLD OR ROOM TEMPERATURE SOFT FOOD AND G ROXY ONCE
     Dates: start: 20160208
  7. AZITHROMYCIN ANHYDROUS. [Concomitant]
     Active Substance: AZITHROMYCIN ANHYDROUS
     Dosage: TAKE ONE TABLET BY MOUTH ON MONDAY, WEDNESDAY AND FRIDAYS
     Dates: start: 20150615
  8. CHOLECALCIFEROL [Concomitant]
     Active Substance: CHOLECALCIFEROL
     Dosage: 6 DF, BID
  9. CYPROHEPTADINE. [Concomitant]
     Active Substance: CYPROHEPTADINE
     Dosage: 1 DF, TID
     Dates: start: 20160317
  10. OMEPRAZOLE. [Concomitant]
     Active Substance: OMEPRAZOLE
     Dosage: TAKE 5 MLS BY MOUTH DAILY
     Route: 048
     Dates: start: 20150602
  11. POLYETHYLENE GLYCOL [Concomitant]
     Active Substance: POLYETHYLENE GLYCOLS
     Dosage: 9 G, QD
     Route: 048
     Dates: start: 20150727
  12. ALBUTEROL. [Concomitant]
     Active Substance: ALBUTEROL
     Dosage: TAKE 3 MLS BY NEBULIZATION 2 TIMES DAILY. TWO TIMES WITH VEST TREATMENTS
     Route: 055
     Dates: start: 20151229
  13. ZENPEP [Concomitant]
     Active Substance: PANCRELIPASE AMYLASE\PANCRELIPASE LIPASE\PANCRELIPASE PROTEASE
     Dosage: TAKE 5 CAPSULES WITH BREAKFAST AND BADTIME, 7 AT LUNCH, 7 AT SUPPER, 4 WITH BEDTIME SNACK,
     Dates: start: 20160219
  14. BECLOMETHASONE [Concomitant]
     Active Substance: BECLOMETHASONE
     Dosage: 1 DF, BID
     Route: 055
     Dates: start: 20160105
  15. ESCITALOPRAM [Concomitant]
     Active Substance: ESCITALOPRAM OXALATE
     Dosage: 1 DF, QD
     Route: 048
     Dates: start: 20151231
  16. ESOMEPRAZOLE [Concomitant]
     Active Substance: ESOMEPRAZOLE
     Dosage: 1 DF, QD
     Route: 048
     Dates: start: 20160205

REACTIONS (1)
  - Infective pulmonary exacerbation of cystic fibrosis [Unknown]

NARRATIVE: CASE EVENT DATE: 20160106
